FAERS Safety Report 10436563 (Version 2)
Quarter: 2014Q3

REPORT INFORMATION
  Report Type: Spontaneous
  Country: US (occurrence: US)
  Receive Date: 20140908
  Receipt Date: 20140908
  Transmission Date: 20150326
  Serious: No
  Sender: FDA-Public Use
  Company Number: US-BRISTOL-MYERS SQUIBB COMPANY-20213617

PATIENT
  Age: 46 Year
  Sex: Female
  Weight: 77.1 kg

DRUGS (6)
  1. TOPAMAX [Concomitant]
     Active Substance: TOPIRAMATE
     Dosage: 1DF: 200MG IN MORNING + 100MG AT NIGHT
  2. ZOLOFT [Concomitant]
     Active Substance: SERTRALINE HYDROCHLORIDE
     Dosage: IN MORNING
  3. TRILEPTAL [Concomitant]
     Active Substance: OXCARBAZEPINE
  4. ABILIFY [Suspect]
     Active Substance: ARIPIPRAZOLE
     Indication: BIPOLAR DISORDER
     Dosage: AT NIGHT
     Route: 048
     Dates: start: 20130326
  5. LAMICTAL [Concomitant]
     Active Substance: LAMOTRIGINE
  6. SEROQUEL [Concomitant]
     Active Substance: QUETIAPINE FUMARATE
     Dosage: ONCE AT NIGHT

REACTIONS (2)
  - Dysphonia [Unknown]
  - Dry mouth [Unknown]
